FAERS Safety Report 8439678-4 (Version None)
Quarter: 2012Q2

REPORT INFORMATION
  Report Type: 
  Country: None (occurrence: None)
  Receive Date: 20120615
  Receipt Date: 20120611
  Transmission Date: 20120825
  Serious: No
  Sender: FDA-Public Use
  Company Number: US-PFIZER INC-2012140189

PATIENT
  Sex: Female
  Weight: 63.492 kg

DRUGS (11)
  1. AMLODIPINE [Concomitant]
     Indication: HYPERTENSION
     Dosage: 5 MG, 1X/DAY
  2. CITALOPRAM [Concomitant]
     Indication: DEPRESSION
     Dosage: 40 MG, 1X/DAY
  3. DEPO-MEDROL [Suspect]
     Indication: BACK DISORDER
     Dosage: UNK
     Route: 008
     Dates: start: 20120501
  4. METOPROLOL [Concomitant]
     Indication: HYPERTENSION
     Dosage: 50 MG, 2X/DAY
  5. LIDOCAINE HYDROCHLORIDE [Suspect]
     Dosage: UNK
     Route: 008
     Dates: start: 20120501
  6. SYNTHROID [Concomitant]
     Indication: HYPOTHYROIDISM
     Dosage: 0.75 MG, 1X/DAY
  7. LYRICA [Suspect]
     Indication: NEUROPATHY PERIPHERAL
     Dosage: 50 MG, 2X/DAY
     Dates: start: 20120502
  8. OXYBUTYNIN [Concomitant]
     Indication: BLADDER DISORDER
     Dosage: 5 MG, 1X/DAY
  9. BUSPIRONE [Concomitant]
     Indication: ANXIETY
     Dosage: ONE TABLET OF 10 MG IN THE MORNING AND HALF TABLET OF 10 MG AT LUNCH TIME
     Route: 048
  10. FENTANYL-100 [Suspect]
     Indication: BACK DISORDER
     Dosage: 100 UG, UNK
     Route: 008
     Dates: start: 20120501
  11. LIOTHYRONINE [Concomitant]
     Indication: HYPOTHYROIDISM
     Dosage: 5 UG, 1X/DAY

REACTIONS (2)
  - OEDEMA PERIPHERAL [None]
  - CONDITION AGGRAVATED [None]
